FAERS Safety Report 8853213 (Version 2)
Quarter: 2012Q4

REPORT INFORMATION
  Report Type: 
  Country: US (occurrence: US)
  Receive Date: 20121022
  Receipt Date: 20121105
  Transmission Date: 20130627
  Serious: Yes (Death)
  Sender: FDA-Public Use
  Company Number: US-PFIZER INC-2012257897

PATIENT
  Age: 60 Year
  Sex: Female

DRUGS (2)
  1. TORISEL [Suspect]
     Indication: BRAIN NEOPLASM
     Dosage: 25 mg, UNK
     Dates: start: 20120501
  2. TORISEL [Suspect]
     Indication: SPINAL CORD NEOPLASM

REACTIONS (1)
  - Death [Fatal]
